FAERS Safety Report 6401803-4 (Version None)
Quarter: 2009Q4

REPORT INFORMATION
  Report Type: 
  Country: None (occurrence: None)
  Receive Date: 20091015
  Receipt Date: 20091006
  Transmission Date: 20100525
  Serious: Yes (Hospitalization)
  Sender: FDA-Public Use
  Company Number: CH-ASTRAZENECA-2009SE18161

PATIENT
  Age: 63 Year
  Sex: Female

DRUGS (3)
  1. ESOMEPRAZOLE [Suspect]
  2. ALENDRONATE SODIUM [Suspect]
     Indication: OSTEOPENIA
  3. CALCIUM SUPPLEMENTATION [Concomitant]

REACTIONS (1)
  - FEMUR FRACTURE [None]
